FAERS Safety Report 10378922 (Version 1)
Quarter: 2014Q3

REPORT INFORMATION
  Report Type: Spontaneous
  Country: DE (occurrence: DE)
  Receive Date: 20140812
  Receipt Date: 20140812
  Transmission Date: 20150326
  Serious: Yes (Death)
  Sender: FDA-Public Use
  Company Number: DE-BRISTOL-MYERS SQUIBB COMPANY-21286919

PATIENT
  Age: 89 Year
  Sex: Female

DRUGS (2)
  1. HEPARIN [Suspect]
     Active Substance: HEPARIN SODIUM
  2. ELIQUIS [Suspect]
     Active Substance: APIXABAN
     Dosage: 2X2.5MG PER DAY?TAB
     Route: 048
     Dates: start: 2012

REACTIONS (2)
  - Death [Fatal]
  - Wrong technique in drug usage process [Unknown]

NARRATIVE: CASE EVENT DATE: 20140804
